FAERS Safety Report 6818382-X (Version None)
Quarter: 2010Q3

REPORT INFORMATION
  Report Type: 
  Country: None (occurrence: None)
  Receive Date: 20100706
  Receipt Date: 20080306
  Transmission Date: 20110219
  Serious: Yes (Death, Other)
  Sender: FDA-Public Use
  Company Number: US-PFIZER INC-2008022489

PATIENT
  Sex: Female
  Weight: 61.2 kg

DRUGS (11)
  1. ZITHROMAX (CAPS) [Suspect]
     Indication: BRONCHITIS
     Dosage: 2 DOSE FORM,1 PER ONE DOSE
     Route: 048
     Dates: start: 20080125, end: 20080127
  2. IBANDRONIC ACID [Suspect]
     Indication: OSTEOPOROSIS
     Route: 042
     Dates: start: 20070115, end: 20080127
  3. WARFARIN SODIUM [Concomitant]
  4. ALTACE [Concomitant]
  5. PREVACID [Concomitant]
  6. DETROL LA [Concomitant]
  7. PAXIL [Concomitant]
  8. COREG [Concomitant]
  9. CENTRUM SILVER [Concomitant]
  10. CALTRATE + D [Concomitant]
  11. CRESTOR [Concomitant]

REACTIONS (8)
  - ALANINE AMINOTRANSFERASE INCREASED [None]
  - ASPARTATE AMINOTRANSFERASE INCREASED [None]
  - BRONCHITIS [None]
  - DECREASED APPETITE [None]
  - DIARRHOEA [None]
  - NAUSEA [None]
  - RENAL FAILURE ACUTE [None]
  - VOMITING [None]
